FAERS Safety Report 5352228-4 (Version None)
Quarter: 2007Q2

REPORT INFORMATION
  Report Type: 
  Country: None (occurrence: None)
  Receive Date: 20070611
  Receipt Date: 20070603
  Transmission Date: 20071010
  Serious: Yes (Hospitalization, Other)
  Sender: FDA-Public Use
  Company Number: US-JNJFOC-20070601521

PATIENT
  Age: 17 Year
  Sex: Male

DRUGS (3)
  1. FENTANYL [Suspect]
     Indication: INTENTIONAL DRUG MISUSE
     Route: 062
  2. PROZAC [Interacting]
     Indication: PANIC DISORDER
     Route: 065
  3. PROZAC [Interacting]
     Indication: ANXIETY
     Route: 065

REACTIONS (7)
  - COMA [None]
  - DRUG INTERACTION [None]
  - FOREIGN BODY ASPIRATION [None]
  - INCOHERENT [None]
  - INTENTIONAL DRUG MISUSE [None]
  - OVERDOSE [None]
  - SOMNOLENCE [None]
